FAERS Safety Report 20808033 (Version 1)
Quarter: 2022Q2

REPORT INFORMATION
  Report Type: Spontaneous
  Country: JP (occurrence: JP)
  Receive Date: 20220510
  Receipt Date: 20220510
  Transmission Date: 20220721
  Serious: Yes (Hospitalization)
  Sender: FDA-Public Use
  Company Number: JP-TEVA-2022-JP-2034981

PATIENT
  Age: 1 Day
  Sex: Male

DRUGS (12)
  1. BROTIZOLAM [Suspect]
     Active Substance: BROTIZOLAM
     Indication: Dissociative disorder
     Dosage: .25 MILLIGRAM DAILY;
     Route: 064
  2. BROTIZOLAM [Suspect]
     Active Substance: BROTIZOLAM
     Indication: Persistent depressive disorder
     Dosage: .25 MILLIGRAM DAILY;
     Route: 063
  3. MIRTAZAPINE [Suspect]
     Active Substance: MIRTAZAPINE
     Indication: Dissociative disorder
     Dosage: 15 MILLIGRAM DAILY;
     Route: 064
  4. MIRTAZAPINE [Suspect]
     Active Substance: MIRTAZAPINE
     Indication: Persistent depressive disorder
  5. SULPIRIDE [Suspect]
     Active Substance: SULPIRIDE
     Indication: Dissociative disorder
     Dosage: 100 MILLIGRAM DAILY;
     Route: 064
  6. SULPIRIDE [Suspect]
     Active Substance: SULPIRIDE
     Indication: Persistent depressive disorder
     Dosage: 100 MILLIGRAM DAILY;
     Route: 063
  7. ZOLPIDEM [Suspect]
     Active Substance: ZOLPIDEM TARTRATE
     Indication: Dissociative disorder
     Dosage: 5 MILLIGRAM DAILY;
     Route: 064
  8. ZOLPIDEM [Suspect]
     Active Substance: ZOLPIDEM TARTRATE
     Indication: Persistent depressive disorder
  9. PERICIAZINE [Suspect]
     Active Substance: PERICIAZINE
     Indication: Dissociative disorder
     Dosage: 10 MILLIGRAM DAILY;
     Route: 064
  10. PERICIAZINE [Suspect]
     Active Substance: PERICIAZINE
     Indication: Persistent depressive disorder
     Dosage: 10 MILLIGRAM DAILY;
     Route: 063
  11. ALPRAZOLAM [Suspect]
     Active Substance: ALPRAZOLAM
     Indication: Dissociative disorder
     Dosage: .4 MILLIGRAM DAILY;
     Route: 063
  12. ALPRAZOLAM [Suspect]
     Active Substance: ALPRAZOLAM
     Indication: Persistent depressive disorder

REACTIONS (3)
  - Drug withdrawal syndrome neonatal [Unknown]
  - Foetal exposure during pregnancy [Unknown]
  - Exposure via breast milk [Unknown]
